FAERS Safety Report 16214265 (Version 1)
Quarter: 2019Q2

REPORT INFORMATION
  Report Type: Spontaneous
  Country: US (occurrence: US)
  Receive Date: 20190418
  Receipt Date: 20190418
  Transmission Date: 20190711
  Serious: Yes (Other)
  Sender: FDA-Public Use
  Company Number: US-TEVA-2019-US-1038639

PATIENT
  Age: 41 Year
  Sex: Female

DRUGS (4)
  1. TENOFOVIR [Concomitant]
     Active Substance: TENOFOVIR
     Route: 065
  2. QUETIAPINE FUMARATE. [Suspect]
     Active Substance: QUETIAPINE FUMARATE
     Dosage: 100 MILLIGRAM DAILY;
     Route: 065
  3. EMTRICITABINE [Concomitant]
     Active Substance: EMTRICITABINE
     Route: 065
  4. LOPINAVIR/RITONAVIR [Interacting]
     Active Substance: LOPINAVIR\RITONAVIR
     Dosage: LOPINAVIR/RITONAVIR 200MG/50MG
     Route: 065

REACTIONS (3)
  - Sedation complication [Not Recovered/Not Resolved]
  - Dizziness [Not Recovered/Not Resolved]
  - Drug interaction [Unknown]
